FAERS Safety Report 7077415-9 (Version None)
Quarter: 2010Q4

REPORT INFORMATION
  Report Type: 
  Country: None (occurrence: None)
  Receive Date: 20101029
  Receipt Date: 20101029
  Transmission Date: 20110411
  Serious: Yes (Life-Threatening)
  Sender: FDA-Public Use
  Company Number: None

PATIENT
  Age: 58 Year
  Sex: Female
  Weight: 63.5036 kg

DRUGS (1)
  1. SORIATANE [Suspect]
     Indication: SKIN DISORDER
     Dosage: 1 DAILY PO
     Route: 048
     Dates: start: 20101009, end: 20101026

REACTIONS (5)
  - ALOPECIA [None]
  - ASTHMA [None]
  - HAEMOPTYSIS [None]
  - SKIN EXFOLIATION [None]
  - THERAPEUTIC AGENT TOXICITY [None]
